FAERS Safety Report 8524112 (Version 2)
Quarter: 2013Q4

REPORT INFORMATION
  Report Type: Spontaneous
  Country: US (occurrence: US)
  Receive Date: 20120420
  Receipt Date: 20131025
  Transmission Date: 20140711
  Serious: Yes (Other)
  Sender: FDA-Public Use
  Company Number: US-ROCHE-1061217

PATIENT
  Sex: Female
  Weight: 96.25 kg

DRUGS (3)
  1. ACCUTANE [Suspect]
     Indication: ACNE
     Route: 065
     Dates: start: 198701, end: 199012
  2. ACCUTANE [Suspect]
     Route: 065
     Dates: start: 1989, end: 1990
  3. ACCUTANE [Suspect]
     Route: 065
     Dates: start: 1991

REACTIONS (9)
  - Inflammatory bowel disease [Unknown]
  - Colon injury [Unknown]
  - Injury [Unknown]
  - Stress [Unknown]
  - Depression [Unknown]
  - Intestinal obstruction [Unknown]
  - Suicidal ideation [Unknown]
  - Haemorrhoids [Unknown]
  - Irritable bowel syndrome [Unknown]
